FAERS Safety Report 9744914 (Version 1)
Quarter: 2013Q4

REPORT INFORMATION
  Report Type: Spontaneous
  Country: GB (occurrence: GB)
  Receive Date: 20131211
  Receipt Date: 20131211
  Transmission Date: 20140711
  Serious: Yes (Other)
  Sender: FDA-Public Use
  Company Number: PHHY2013GB141327

PATIENT
  Age: 66 Year
  Sex: Female

DRUGS (6)
  1. VENLAFAXINE [Suspect]
     Dosage: 150 MG, QD
  2. ZOPICLONE [Concomitant]
  3. AMLODIPINE [Concomitant]
  4. TRAMADOL [Concomitant]
  5. MIRTAZAPINE [Concomitant]
  6. ZAPAIN [Concomitant]

REACTIONS (4)
  - Product formulation issue [Unknown]
  - Depression [Recovered/Resolved]
  - Suicidal ideation [Recovered/Resolved]
  - Drug ineffective [Recovered/Resolved]
